FAERS Safety Report 16649837 (Version 8)
Quarter: 2019Q4

REPORT INFORMATION
  Report Type: Spontaneous
  Country: FR (occurrence: FR)
  Receive Date: 20190730
  Receipt Date: 20191128
  Transmission Date: 20200122
  Serious: Yes (Hospitalization, Other)
  Sender: FDA-Public Use
  Company Number: FR-CELLTRION INC.-2019FR023002

PATIENT

DRUGS (11)
  1. VORICONAZOLE. [Suspect]
     Active Substance: VORICONAZOLE
     Indication: BRONCHOPULMONARY ASPERGILLOSIS
     Dosage: UNK
  2. PREDNISOLONE SODIUM SULFATE (PREDNISOLONE) [Suspect]
     Active Substance: PREDNISOLONE
     Dosage: 20 MG, DAILY
     Route: 065
  3. RITUXIMAB (UNKNOWN) [Suspect]
     Active Substance: RITUXIMAB
     Indication: CHRONIC LYMPHOCYTIC LEUKAEMIA
     Dosage: 500 MG/M2, Q2W
     Route: 065
  4. PREDNISOLONE SODIUM SULFATE (PREDNISOLONE) [Suspect]
     Active Substance: PREDNISOLONE
     Indication: CHRONIC LYMPHOCYTIC LEUKAEMIA
     Dosage: 1.5 MG/KG DAILY
     Route: 065
  5. IBRUTINIB [Suspect]
     Active Substance: IBRUTINIB
     Indication: CHRONIC LYMPHOCYTIC LEUKAEMIA
     Dosage: 420 MG, QD
     Route: 065
  6. PREDNISONE. [Suspect]
     Active Substance: PREDNISONE
     Indication: CHRONIC LYMPHOCYTIC LEUKAEMIA
     Dosage: 1.5 MG/KG, QD
     Route: 065
  7. IBRUTINIB [Suspect]
     Active Substance: IBRUTINIB
     Dosage: 420 MG, QD (ACTION TAKEN: INITIALLY DOSE REDUCED (DUE TO DRUG INTERACTION)
     Route: 065
  8. VORICONAZOLE. [Suspect]
     Active Substance: VORICONAZOLE
     Indication: CHRONIC LYMPHOCYTIC LEUKAEMIA
     Dosage: UNK
     Route: 048
  9. PREDNISONE. [Suspect]
     Active Substance: PREDNISONE
     Dosage: 20 MG, QD
     Route: 065
  10. VORICONAZOLE. [Suspect]
     Active Substance: VORICONAZOLE
     Indication: ASPERGILLUS INFECTION
     Dosage: UNK
     Route: 048
  11. IBRUTINIB [Suspect]
     Active Substance: IBRUTINIB
     Dosage: 140 MG, QD (ACTION TAKEN: INITIALLY DOSE REDUCED (DUE TO DRUG INTERACTION)
     Route: 065

REACTIONS (13)
  - Aspergillus infection [Recovered/Resolved]
  - Cough [Recovered/Resolved]
  - Pulmonary haemorrhage [Recovered/Resolved]
  - Dizziness [Recovered/Resolved]
  - Drug interaction [Recovered/Resolved]
  - Balance disorder [Recovered/Resolved]
  - Bronchopulmonary aspergillosis [Recovered/Resolved]
  - Cerebral aspergillosis [Recovered/Resolved]
  - Pulmonary mass [Recovered/Resolved]
  - Dyspnoea [Recovered/Resolved]
  - Drug level increased [Recovered/Resolved]
  - Hemiparesis [Recovered/Resolved]
  - Pleural effusion [Recovered/Resolved]
